FAERS Safety Report 6892810-6 (Version None)
Quarter: 2010Q3

REPORT INFORMATION
  Report Type: 
  Country: None (occurrence: None)
  Receive Date: 20100731
  Receipt Date: 20080925
  Transmission Date: 20110219
  Serious: No
  Sender: FDA-Public Use
  Company Number: US-PFIZER INC-2008082291

PATIENT
  Age: 45 Year
  Sex: Male

DRUGS (1)
  1. NEURONTIN [Suspect]
     Indication: PERONEAL MUSCULAR ATROPHY

REACTIONS (1)
  - DRUG SCREEN FALSE POSITIVE [None]
